FAERS Safety Report 20405442 (Version 1)
Quarter: 2022Q1

REPORT INFORMATION
  Report Type: Spontaneous
  Country: CN (occurrence: CN)
  Receive Date: 20220131
  Receipt Date: 20220131
  Transmission Date: 20220424
  Serious: Yes (Other)
  Sender: FDA-Public Use
  Company Number: CN-PFIZER INC-202200106460

PATIENT
  Age: 58 Year
  Sex: Male
  Weight: 70 kg

DRUGS (2)
  1. AXITINIB [Suspect]
     Active Substance: AXITINIB
     Indication: Von Hippel-Lindau disease
     Dosage: 5 MG, 2X/DAY
     Route: 048
     Dates: start: 20211217
  2. AXITINIB [Suspect]
     Active Substance: AXITINIB
     Dosage: 5 MG, 2X/DAY
     Route: 048
     Dates: start: 20211223, end: 20211231

REACTIONS (6)
  - Cardiac failure [Recovering/Resolving]
  - Condition aggravated [Recovering/Resolving]
  - Haemoptysis [Recovering/Resolving]
  - Pulmonary haemorrhage [Recovering/Resolving]
  - Myocardial injury [Recovering/Resolving]
  - Off label use [Unknown]

NARRATIVE: CASE EVENT DATE: 20211201
